FAERS Safety Report 10434391 (Version 2)
Quarter: 2014Q4

REPORT INFORMATION
  Report Type: Spontaneous
  Country: US (occurrence: US)
  Receive Date: 20140905
  Receipt Date: 20141027
  Transmission Date: 20150528
  Serious: Yes (Other)
  Sender: FDA-Public Use
  Company Number: US-009507513-1409USA000761

PATIENT
  Age: 62 Year
  Sex: Male
  Weight: 104.31 kg

DRUGS (13)
  1. CINNAMON. [Concomitant]
     Active Substance: CINNAMON
  2. PRINIVIL [Concomitant]
     Active Substance: LISINOPRIL
     Route: 048
  3. MAGNESIUM (UNSPECIFIED) [Concomitant]
     Active Substance: MAGNESIUM
  4. OMEGA-3 MARINE TRIGLYCERIDES [Concomitant]
     Active Substance: FISH OIL
  5. GLIMEPIRIDE. [Concomitant]
     Active Substance: GLIMEPIRIDE
  6. LYRICA [Concomitant]
     Active Substance: PREGABALIN
  7. PIOGLITAZONE HYDROCHLORIDE. [Concomitant]
     Active Substance: PIOGLITAZONE HYDROCHLORIDE
  8. ASCORBIC ACID (+) CHOLECALCIFEROL [Concomitant]
  9. ASPIRIN. [Concomitant]
     Active Substance: ASPIRIN
     Route: 048
  10. ZOCOR [Concomitant]
     Active Substance: SIMVASTATIN
     Route: 048
  11. VITAMINS (UNSPECIFIED) [Concomitant]
     Active Substance: VITAMINS
  12. JANUMET [Suspect]
     Active Substance: METFORMIN HYDROCHLORIDE\SITAGLIPTIN PHOSPHATE
     Indication: TYPE 2 DIABETES MELLITUS
     Dosage: 1 TABLET, BID
     Route: 048
     Dates: start: 20130303, end: 20130415
  13. BISOPROLOL [Concomitant]
     Active Substance: BISOPROLOL

REACTIONS (1)
  - Abdominal pain upper [Not Recovered/Not Resolved]

NARRATIVE: CASE EVENT DATE: 20130304
